FAERS Safety Report 4288859-2 (Version None)
Quarter: 2004Q1

REPORT INFORMATION
  Report Type: 
  Country: None (occurrence: None)
  Receive Date: 20040205
  Receipt Date: 20040116
  Transmission Date: 20041129
  Serious: Yes (Death, Life-Threatening, Hospitalization)
  Sender: FDA-Public Use
  Company Number: EWC031237488

PATIENT
  Age: 72 Year
  Sex: Female

DRUGS (3)
  1. XIGRIS [Suspect]
     Indication: SEPSIS
     Dosage: 24 UG/KG/HR
     Dates: start: 20031208, end: 20031212
  2. FRAXIPARINE (HEPARIN-FRACTION, CALCIUM SALT) [Concomitant]
  3. FRAXIPARINE (HEPARIN-FRACTION, CALCIUM SALT) [Concomitant]

REACTIONS (2)
  - PLATELET COUNT DECREASED [None]
  - PULMONARY HAEMORRHAGE [None]
